FAERS Safety Report 7966279-4 (Version None)
Quarter: 2011Q4

REPORT INFORMATION
  Report Type: 
  Country: None (occurrence: None)
  Receive Date: 20111208
  Receipt Date: 20111129
  Transmission Date: 20120403
  Serious: Yes (Hospitalization, Other)
  Sender: FDA-Public Use
  Company Number: US-ABBOTT-11P-163-0873241-00

PATIENT
  Sex: Female

DRUGS (6)
  1. ADVAIR DISKUS 100/50 [Concomitant]
     Indication: ASTHMA
     Dates: start: 20110101
  2. LIPITOR [Concomitant]
     Indication: HYPERCHOLESTEROLAEMIA
  3. FOSAMAX [Concomitant]
     Indication: OSTEOPENIA
     Dates: start: 20040101
  4. HUMIRA [Suspect]
     Indication: PSORIASIS
     Route: 058
     Dates: start: 20110519, end: 20110519
  5. ANALAPRIL [Concomitant]
     Indication: HYPERTENSION
     Dates: start: 20040101
  6. HUMIRA [Suspect]
     Route: 058

REACTIONS (3)
  - LUNG ADENOCARCINOMA STAGE I [None]
  - ASTHMA [None]
  - COUGH [None]
